FAERS Safety Report 5838791-5 (Version None)
Quarter: 2008Q3

REPORT INFORMATION
  Report Type: 
  Country: None (occurrence: None)
  Receive Date: 20080808
  Receipt Date: 20080731
  Transmission Date: 20090109
  Serious: Yes (Other)
  Sender: FDA-Public Use
  Company Number: CHNY2008AU02917

PATIENT
  Sex: Female

DRUGS (6)
  1. LAMISIL [Suspect]
     Indication: TINEA PEDIS
     Dosage: UNK
     Route: 061
  2. LAMISIL [Suspect]
     Indication: ONYCHOMYCOSIS
  3. LAMISIL [Suspect]
     Indication: TINEA PEDIS
     Route: 048
  4. LAMISIL [Suspect]
     Indication: ONYCHOMYCOSIS
  5. ANTIBIOTICS [Concomitant]
  6. PREDNISOLONE [Concomitant]

REACTIONS (2)
  - DIARRHOEA [None]
  - DYSPEPSIA [None]
